FAERS Safety Report 18955509 (Version 1)
Quarter: 2021Q1

REPORT INFORMATION
  Report Type: Spontaneous
  Country: CA (occurrence: CA)
  Receive Date: 20210302
  Receipt Date: 20210302
  Transmission Date: 20210420
  Serious: Yes (Other)
  Sender: FDA-Public Use
  Company Number: CA-ROCHE-2776163

PATIENT
  Age: 44 Year
  Sex: Female
  Weight: 117 kg

DRUGS (6)
  1. CIMZIA [Suspect]
     Active Substance: CERTOLIZUMAB PEGOL
     Indication: PRODUCT USED FOR UNKNOWN INDICATION
     Dosage: 376.0 DAYS
     Route: 058
  2. METHOTREXATE. [Suspect]
     Active Substance: METHOTREXATE
     Indication: PRODUCT USED FOR UNKNOWN INDICATION
     Dosage: 113.0 DAYS
     Route: 065
  3. ROSUVASTATIN CALCIUM. [Suspect]
     Active Substance: ROSUVASTATIN CALCIUM
     Indication: PRODUCT USED FOR UNKNOWN INDICATION
     Route: 048
  4. ACTEMRA [Suspect]
     Active Substance: TOCILIZUMAB
     Indication: RHEUMATOID ARTHRITIS
     Route: 042
  5. SULFASALAZINE. [Suspect]
     Active Substance: SULFASALAZINE
     Indication: PRODUCT USED FOR UNKNOWN INDICATION
     Dosage: 113.0 DAYS
     Route: 065
  6. HYDROXYCHLOROQUINE SULFATE. [Suspect]
     Active Substance: HYDROXYCHLOROQUINE SULFATE
     Indication: PRODUCT USED FOR UNKNOWN INDICATION
     Dosage: 113.0 DAYS
     Route: 065

REACTIONS (32)
  - Anxiety [Unknown]
  - Blood glucose increased [Unknown]
  - Blood pressure diastolic increased [Unknown]
  - Headache [Unknown]
  - Influenza [Unknown]
  - Oropharyngeal pain [Unknown]
  - Productive cough [Unknown]
  - Blood pressure diastolic decreased [Unknown]
  - Blood pressure fluctuation [Unknown]
  - Blood pressure increased [Unknown]
  - Cardiac disorder [Unknown]
  - Weight decreased [Unknown]
  - Blood pressure systolic increased [Unknown]
  - Heart rate increased [Unknown]
  - Weight increased [Unknown]
  - Immunosuppression [Unknown]
  - Arthralgia [Unknown]
  - Croup infectious [Unknown]
  - Fibromyalgia [Unknown]
  - Hypertension [Unknown]
  - Infusion related reaction [Unknown]
  - Nasopharyngitis [Unknown]
  - Blood pressure diastolic abnormal [Unknown]
  - Foot deformity [Unknown]
  - Bronchitis [Unknown]
  - Contusion [Unknown]
  - Pain [Unknown]
  - Stress [Unknown]
  - Drug ineffective [Unknown]
  - Gastroenteritis viral [Unknown]
  - Musculoskeletal stiffness [Unknown]
  - Pertussis [Unknown]
